FAERS Safety Report 6021289-1 (Version None)
Quarter: 2008Q4

REPORT INFORMATION
  Report Type: 
  Country: None (occurrence: None)
  Receive Date: 20081229
  Receipt Date: 20081219
  Transmission Date: 20090506
  Serious: Yes (Hospitalization, Other)
  Sender: FDA-Public Use
  Company Number: CA-ABBOTT-08P-028-0490019-00

PATIENT
  Sex: Male
  Weight: 83.082 kg

DRUGS (16)
  1. HUMIRA [Suspect]
     Indication: RHEUMATOID ARTHRITIS
     Route: 058
     Dates: start: 20080319
  2. NOVO-CEPHALEXIN [Suspect]
     Indication: LOCALISED INFECTION
     Dates: start: 20081022, end: 20081029
  3. VIAGRA [Suspect]
     Indication: DRUG USE FOR UNKNOWN INDICATION
  4. MICARDIS [Concomitant]
     Indication: DRUG USE FOR UNKNOWN INDICATION
  5. TESTOSTERONE [Concomitant]
     Indication: DRUG USE FOR UNKNOWN INDICATION
     Route: 050
  6. METFORMIN [Concomitant]
     Indication: DRUG USE FOR UNKNOWN INDICATION
     Dosage: 500MG 1/2 TAB BID
  7. SYNTHROID [Concomitant]
     Indication: DRUG USE FOR UNKNOWN INDICATION
  8. FOLIC ACID [Concomitant]
     Indication: DRUG USE FOR UNKNOWN INDICATION
  9. ADVAIR DISKUS 250/50 [Concomitant]
     Indication: DRUG USE FOR UNKNOWN INDICATION
  10. ALBUTEROL SULFATE [Concomitant]
     Indication: DRUG USE FOR UNKNOWN INDICATION
  11. XALATAN [Concomitant]
     Indication: DRUG USE FOR UNKNOWN INDICATION
     Dosage: 1 DROP IN EACH EYE
  12. METHOTREXATE [Concomitant]
     Indication: DRUG USE FOR UNKNOWN INDICATION
  13. NOVO-LENDRONATE [Concomitant]
     Indication: DRUG USE FOR UNKNOWN INDICATION
  14. NOVO-FUROSEMIDE [Concomitant]
     Indication: DRUG USE FOR UNKNOWN INDICATION
  15. THYAZAC XC [Concomitant]
     Indication: DRUG USE FOR UNKNOWN INDICATION
  16. NOVO-RABEPRAZOLE EC [Concomitant]
     Indication: DRUG USE FOR UNKNOWN INDICATION

REACTIONS (8)
  - CONVULSION [None]
  - HEART RATE IRREGULAR [None]
  - LIMB INJURY [None]
  - LOSS OF CONSCIOUSNESS [None]
  - MUSCULOSKELETAL STIFFNESS [None]
  - SENSITIVITY OF TEETH [None]
  - TOOTH INFECTION [None]
  - WOUND INFECTION [None]
